FAERS Safety Report 7871590-1 (Version None)
Quarter: 2011Q4

REPORT INFORMATION
  Report Type: 
  Country: None (occurrence: None)
  Receive Date: 20111014
  Receipt Date: 20101108
  Transmission Date: 20120403
  Serious: Yes (Hospitalization)
  Sender: FDA-Public Use
  Company Number: AXC-2010-000237

PATIENT
  Age: 58 Year
  Sex: Male

DRUGS (3)
  1. ALTERNAGEL /00057403/ (ALUMINIUM HYDROXIDE GEL, DRIED) UNKNOWN [Suspect]
     Indication: PRODUCT USED FOR UNKNOWN INDICATION
     Dates: start: 19890311, end: 19890323
  2. VITAMIN K /00032401 (PHYTOMENADIONE) [Concomitant]
  3. CARAFATE [Suspect]
     Indication: PROPHYLAXIS
     Dosage: 1 G, QID, ORAL
     Route: 048
     Dates: start: 19890311, end: 19890323

REACTIONS (1)
  - BEZOAR [None]
